FAERS Safety Report 6457095-3 (Version None)
Quarter: 2009Q4

REPORT INFORMATION
  Report Type: 
  Country: None (occurrence: None)
  Receive Date: 20091125
  Receipt Date: 20091119
  Transmission Date: 20100525
  Serious: Yes (Hospitalization)
  Sender: FDA-Public Use
  Company Number: B0588910A

PATIENT
  Age: 35 Year
  Sex: Female

DRUGS (7)
  1. LAMICTAL [Suspect]
     Indication: COMPLEX PARTIAL SEIZURES
     Dosage: 50MG PER DAY
     Route: 048
     Dates: start: 20090723, end: 20090805
  2. LAMICTAL [Suspect]
     Dosage: 75MG PER DAY
     Route: 048
     Dates: start: 20090806, end: 20090807
  3. CLONAZEPAM [Concomitant]
     Indication: COMPLEX PARTIAL SEIZURES
     Route: 048
  4. ACETAZOLAMIDE [Concomitant]
     Indication: COMPLEX PARTIAL SEIZURES
     Route: 065
  5. ZONISAMIDE [Concomitant]
     Indication: COMPLEX PARTIAL SEIZURES
     Route: 048
  6. GABAPENTIN [Concomitant]
     Indication: COMPLEX PARTIAL SEIZURES
  7. TOPIRAMATE [Concomitant]
     Indication: COMPLEX PARTIAL SEIZURES

REACTIONS (6)
  - BLEPHARITIS [None]
  - CONJUNCTIVITIS [None]
  - EATING DISORDER [None]
  - RASH GENERALISED [None]
  - STEVENS-JOHNSON SYNDROME [None]
  - STOMATITIS [None]
